FAERS Safety Report 8119416-5 (Version None)
Quarter: 2011Q4

REPORT INFORMATION
  Report Type: 
  Country: None (occurrence: None)
  Receive Date: 20111227
  Receipt Date: 20110929
  Transmission Date: 20120403
  Serious: No
  Sender: FDA-Public Use
  Company Number: PHEH2011US05493

PATIENT
  Age: 51 Year
  Sex: Female

DRUGS (7)
  1. CLONIDINE [Suspect]
     Dosage: 0.1 MG, TID
  2. CELEXA [Concomitant]
  3. TRAZODONE HCL [Concomitant]
  4. PROVIGIL [Concomitant]
  5. VALIUM [Concomitant]
  6. GILENYA [Suspect]
     Indication: MULTIPLE SCLEROSIS
     Dosage: 0.5 MG, QD, ORAL
     Route: 048
     Dates: start: 20110914
  7. NEURONTIN [Concomitant]

REACTIONS (4)
  - VERTIGO [None]
  - ASTHENIA [None]
  - DIZZINESS [None]
  - FEELING ABNORMAL [None]
